FAERS Safety Report 9753764 (Version 3)
Quarter: 2015Q3

REPORT INFORMATION
  Report Type: Spontaneous
  Country: US (occurrence: US)
  Receive Date: 20131213
  Receipt Date: 20150805
  Transmission Date: 20151125
  Serious: No
  Sender: FDA-Public Use
  Company Number: US-GILEAD-2010-0026516

PATIENT
  Age: 79 Year
  Sex: Female
  Weight: 53.07 kg

DRUGS (28)
  1. NORCO [Concomitant]
     Active Substance: ACETAMINOPHEN\HYDROCODONE BITARTRATE
  2. PREVACID [Concomitant]
     Active Substance: LANSOPRAZOLE
  3. CLARINEX [Concomitant]
     Active Substance: DESLORATADINE
  4. ZETIA [Concomitant]
     Active Substance: EZETIMIBE
  5. XYZAL [Concomitant]
     Active Substance: LEVOCETIRIZINE DIHYDROCHLORIDE
  6. CENTRUM SILVER [Concomitant]
     Active Substance: VITAMINS
  7. PREDNISONE. [Concomitant]
     Active Substance: PREDNISONE
  8. CALCIUM [Concomitant]
     Active Substance: CALCIUM
  9. GLUCOSAMINE [Concomitant]
     Active Substance: GLUCOSAMINE
  10. LETAIRIS [Suspect]
     Active Substance: AMBRISENTAN
     Indication: PULMONARY ARTERIAL HYPERTENSION
     Route: 048
     Dates: start: 20081002
  11. SYNTHROID [Concomitant]
     Active Substance: LEVOTHYROXINE SODIUM
  12. FOLTX [Concomitant]
     Active Substance: CYANOCOBALAMIN CO-57\FOLIC ACID\PYRIDOXINE HYDROCHLORIDE
  13. SINGULAIR [Concomitant]
     Active Substance: MONTELUKAST SODIUM
  14. SUPER B-50 COMPLEX [Concomitant]
  15. FUROSEMIDE. [Concomitant]
     Active Substance: FUROSEMIDE
  16. ZOLOFT [Concomitant]
     Active Substance: SERTRALINE HYDROCHLORIDE
  17. FOLIC ACID. [Concomitant]
     Active Substance: FOLIC ACID
  18. ASPIRIN. [Concomitant]
     Active Substance: ASPIRIN
  19. KLOR-CON [Concomitant]
     Active Substance: POTASSIUM CHLORIDE
  20. VIVELLE [Concomitant]
     Active Substance: ESTRADIOL
  21. BONIVA [Concomitant]
     Active Substance: IBANDRONATE SODIUM
  22. METHOTREXATE [Concomitant]
     Active Substance: METHOTREXATE
  23. FERROUS SULFATE [Concomitant]
     Active Substance: FERROUS SULFATE\FERROUS SULFATE, DRIED
  24. VITAMIN D [Concomitant]
     Active Substance: CHOLECALCIFEROL
  25. TRIGLIDE [Concomitant]
     Active Substance: FENOFIBRATE
  26. MYCOPHENOLATE [Concomitant]
     Active Substance: MYCOPHENOLIC ACID
  27. CRESTOR [Concomitant]
     Active Substance: ROSUVASTATIN CALCIUM
  28. COZAAR [Concomitant]
     Active Substance: LOSARTAN POTASSIUM

REACTIONS (1)
  - Hypertrichosis [Unknown]
